FAERS Safety Report 7289358-6 (Version None)
Quarter: 2011Q1

REPORT INFORMATION
  Report Type: 
  Country: None (occurrence: None)
  Receive Date: 20110211
  Receipt Date: 20110203
  Transmission Date: 20110831
  Serious: Yes (Life-Threatening, Hospitalization)
  Sender: FDA-Public Use
  Company Number: FR-PFIZER INC-2011024511

PATIENT
  Age: 4 Year
  Sex: Male
  Weight: 20 kg

DRUGS (5)
  1. IBUPROFEN (ADVIL) [Suspect]
     Dosage: 6 INTAKES AT LEAST
     Route: 048
  2. NOVALGINE [Concomitant]
     Dosage: UNK
  3. FLAGYL [Concomitant]
     Dosage: UNK
  4. PERFALGAN [Concomitant]
     Dosage: 4 DF, PER DAY
  5. ROCEPHIN [Concomitant]
     Dosage: 500 UNK, X2

REACTIONS (2)
  - GASTRIC ULCER PERFORATION [None]
  - HYPOVOLAEMIC SHOCK [None]
